FAERS Safety Report 4974794-0 (Version None)
Quarter: 2006Q2

REPORT INFORMATION
  Report Type: 
  Country: None (occurrence: None)
  Receive Date: 20060417
  Receipt Date: 20050331
  Transmission Date: 20061013
  Serious: Yes (Hospitalization)
  Sender: FDA-Public Use
  Company Number: US-MERCK-0504USA00231

PATIENT
  Age: 61 Year
  Sex: Male
  Weight: 77 kg

DRUGS (10)
  1. VIOXX [Suspect]
     Indication: PAIN
     Route: 048
     Dates: start: 20000201, end: 20031001
  2. OXYCODONE [Concomitant]
     Route: 065
  3. LORAZEPAM [Concomitant]
     Route: 065
  4. WELLBUTRIN [Concomitant]
     Route: 065
  5. NABUMETONE [Concomitant]
     Route: 065
  6. PREDNISONE [Concomitant]
     Route: 065
  7. BIAXIN [Concomitant]
     Route: 065
  8. CEPHALEXIN [Concomitant]
     Route: 065
  9. [THERAPY UNSPECIFIED] [Concomitant]
     Route: 065
  10. PROPOXYPHENE NAPSYLATE [Concomitant]
     Route: 065

REACTIONS (15)
  - ANAEMIA [None]
  - ANGINA UNSTABLE [None]
  - ARTHRITIS [None]
  - BLOOD CHOLESTEROL INCREASED [None]
  - CEREBROVASCULAR ACCIDENT [None]
  - CHEST PAIN [None]
  - CORONARY ARTERY DISEASE [None]
  - DIZZINESS [None]
  - DIZZINESS POSTURAL [None]
  - DYSLIPIDAEMIA [None]
  - HYPERTENSION [None]
  - LABILE BLOOD PRESSURE [None]
  - MYOCARDIAL INFARCTION [None]
  - POSTURING [None]
  - THROMBOSIS [None]
